FAERS Safety Report 19459461 (Version 1)
Quarter: 2021Q2

REPORT INFORMATION
  Report Type: Report from Study
  Country: BE (occurrence: BE)
  Receive Date: 20210624
  Receipt Date: 20210624
  Transmission Date: 20210717
  Serious: Yes (Other)
  Sender: FDA-Public Use
  Company Number: BE-AMGEN-BELCT2020150139

PATIENT
  Age: 29 Year
  Sex: Female

DRUGS (1)
  1. ERENUMAB [Suspect]
     Active Substance: ERENUMAB
     Indication: MIGRAINE
     Dosage: 1 DOSAGE FORM, QMO
     Route: 065
     Dates: start: 20200715, end: 20200721

REACTIONS (3)
  - Maternal exposure during pregnancy [Unknown]
  - Cholestasis [Unknown]
  - Hypertension [Unknown]
